FAERS Safety Report 23125115 (Version 1)
Quarter: 2023Q4

REPORT INFORMATION
  Report Type: Spontaneous
  Country: US (occurrence: None)
  Receive Date: 20231030
  Receipt Date: 20231030
  Transmission Date: 20240110
  Serious: Yes (Hospitalization)
  Sender: FDA-Public Use
  Company Number: None

PATIENT
  Sex: Male

DRUGS (4)
  1. DIMETHYL FUMARATE [Suspect]
     Active Substance: DIMETHYL FUMARATE
     Indication: Multiple sclerosis
     Route: 048
     Dates: start: 20231005
  2. ASPIRIN CHW 81MG [Concomitant]
  3. COPAXONE [Concomitant]
     Active Substance: GLATIRAMER ACETATE
  4. LEXAPRO TAB 10MG [Concomitant]

REACTIONS (1)
  - Hospitalisation [None]
